FAERS Safety Report 4373136-1 (Version None)
Quarter: 2004Q2

REPORT INFORMATION
  Report Type: 
  Country: None (occurrence: None)
  Receive Date: 20040603
  Receipt Date: 20040519
  Transmission Date: 20050107
  Serious: Yes (Other)
  Sender: FDA-Public Use
  Company Number: USA040567891

PATIENT
  Age: 73 Year
  Sex: Female

DRUGS (5)
  1. HUMULIN R [Suspect]
  2. HUMALOG [Suspect]
     Dates: start: 20030101
  3. GLYBURIDE [Concomitant]
  4. GLUCOPHAGE [Concomitant]
  5. ACTOS [Concomitant]

REACTIONS (4)
  - CARCINOMA [None]
  - PHARMACEUTICAL PRODUCT COMPLAINT [None]
  - PRURITUS [None]
  - WEIGHT INCREASED [None]
